FAERS Safety Report 23252021 (Version 1)
Quarter: 2023Q4

REPORT INFORMATION
  Report Type: Spontaneous
  Country: US (occurrence: US)
  Receive Date: 20231201
  Receipt Date: 20231201
  Transmission Date: 20240110
  Serious: No
  Sender: FDA-Public Use
  Company Number: US-SA-SAC20231123000952

PATIENT
  Age: 8 Year
  Sex: Female
  Weight: 27.6 kg

DRUGS (11)
  1. CEREZYME [Suspect]
     Active Substance: IMIGLUCERASE
     Indication: Gaucher^s disease
     Dosage: 1200 U, QOW
     Route: 065
     Dates: start: 20230427
  2. EPINEPHRINE [Concomitant]
     Active Substance: EPINEPHRINE
  3. ACETAMINOPHEN [Concomitant]
     Active Substance: ACETAMINOPHEN
  4. SODIUM CHLORIDE [Concomitant]
     Active Substance: SODIUM CHLORIDE
  5. STERILE WATER [Concomitant]
     Active Substance: WATER
  6. HEPARIN [Concomitant]
     Active Substance: HEPARIN SODIUM
  7. DEXMETHYLPHENIDATE HYDROCHLORIDE [Concomitant]
     Active Substance: DEXMETHYLPHENIDATE HYDROCHLORIDE
  8. LIDOCAINE [Concomitant]
     Active Substance: LIDOCAINE
  9. DIPHENHYDRAMINE [Concomitant]
     Active Substance: DIPHENHYDRAMINE
  10. DIPHENHYDRAMINE HYDROCHLORIDE [Concomitant]
     Active Substance: DIPHENHYDRAMINE HYDROCHLORIDE
  11. VITAMINS NOS [Concomitant]
     Active Substance: VITAMINS

REACTIONS (3)
  - Haemophilus infection [Recovering/Resolving]
  - Ear infection [Recovering/Resolving]
  - Pyrexia [Recovered/Resolved]

NARRATIVE: CASE EVENT DATE: 20231110
